FAERS Safety Report 19006818 (Version 1)
Quarter: 2021Q1

REPORT INFORMATION
  Report Type: Spontaneous
  Country: US (occurrence: US)
  Receive Date: 20210315
  Receipt Date: 20210315
  Transmission Date: 20210420
  Serious: Yes (Death)
  Sender: FDA-Public Use
  Company Number: US-ROCHE-2751695

PATIENT
  Age: 62 Year
  Sex: Female

DRUGS (1)
  1. XELODA [Suspect]
     Active Substance: CAPECITABINE
     Indication: NEOPLASM MALIGNANT
     Route: 048
     Dates: start: 202101

REACTIONS (6)
  - Small intestinal obstruction [Fatal]
  - Product prescribing error [Unknown]
  - Neoplasm malignant [Fatal]
  - Frequent bowel movements [Unknown]
  - Fatigue [Unknown]
  - Renal failure [Fatal]

NARRATIVE: CASE EVENT DATE: 20210115
